FAERS Safety Report 24322685 (Version 1)
Quarter: 2024Q3

REPORT INFORMATION
  Report Type: Spontaneous
  Country: US (occurrence: US)
  Receive Date: 20240916
  Receipt Date: 20240916
  Transmission Date: 20241017
  Serious: Yes (Other)
  Sender: MYLAN
  Company Number: US-MYLANLABS-2024M1082871

PATIENT
  Age: 6 Decade
  Sex: Female

DRUGS (7)
  1. DEXAMETHASONE [Suspect]
     Active Substance: DEXAMETHASONE
     Indication: Arthralgia
     Dosage: 20 MILLIGRAM, CYCLE, 20 MILLIGRAM {THE NIGHTS BEFORE CYCLES 1-2}
     Route: 048
  2. DEXAMETHASONE [Suspect]
     Active Substance: DEXAMETHASONE
     Indication: Arthralgia
     Dosage: 20 MILLIGRAM, CYCLE, 20 MILLIGRAM (WITH CYCLES 1-2)
     Route: 042
  3. DEXAMETHASONE [Suspect]
     Active Substance: DEXAMETHASONE
     Dosage: 8 MILLIGRAM, CYCLE, 8 MILLIGRAM (WITH CYCLES 3-6)
     Route: 042
  4. PREDNISONE [Suspect]
     Active Substance: PREDNISONE
     Indication: Arthralgia
     Dosage: 10 MILLIGRAM, BID, FOR 5 DAYS AFTER CYCLES 2, 3 AND 6
     Route: 048
  5. DOSTARLIMAB [Concomitant]
     Active Substance: DOSTARLIMAB
     Indication: Endometrial cancer
     Dosage: UNK UNK, CYCLE {3-6 CYCLES}
     Route: 065
  6. PACLITAXEL [Concomitant]
     Active Substance: PACLITAXEL
     Indication: Endometrial cancer
     Dosage: UNK UNK, CYCLE {6 CYCLES}
     Route: 065
  7. CARBOPLATIN [Concomitant]
     Active Substance: CARBOPLATIN
     Indication: Endometrial cancer
     Dosage: UNK UNK, CYCLE {SIX CYCLES}
     Route: 065

REACTIONS (3)
  - Symptom masked [Unknown]
  - Psoriasis [Unknown]
  - Psoriatic arthropathy [Unknown]
